FAERS Safety Report 7699962-9 (Version None)
Quarter: 2011Q3

REPORT INFORMATION
  Report Type: 
  Country: None (occurrence: None)
  Receive Date: 20110822
  Receipt Date: 20110812
  Transmission Date: 20111222
  Serious: Yes (Other)
  Sender: FDA-Public Use
  Company Number: JP-JNJFOC-20110807845

PATIENT
  Sex: Female

DRUGS (23)
  1. CODEINE SULFATE [Concomitant]
     Route: 048
     Dates: start: 20110406
  2. ACETAMINOPHEN [Concomitant]
     Indication: PAIN
     Dosage: AS NECESSARY
     Route: 048
     Dates: start: 20110427
  3. PROCHLORPERAZINE [Concomitant]
     Indication: PAIN
     Dosage: AS NECESSARY
     Route: 048
     Dates: start: 20110511
  4. FERROUS CITRATE [Concomitant]
     Dosage: AS NECESSARY
     Route: 048
     Dates: start: 20110527, end: 20110624
  5. CODEINE SULFATE [Concomitant]
     Route: 048
     Dates: start: 20110330
  6. ROPIVACAINE HYDROCHLORIDE [Concomitant]
     Indication: PAIN
     Route: 065
  7. MAGMITT [Concomitant]
     Indication: PROPHYLAXIS
     Route: 048
     Dates: start: 20110323
  8. LANSOPRAZOLE [Concomitant]
     Dosage: AS NECESSARY
     Route: 048
  9. FENTANYL CITRATE [Suspect]
     Route: 062
     Dates: start: 20110406, end: 20110420
  10. CELECOXIB [Concomitant]
     Indication: PAIN
     Route: 048
  11. PROCHLORPERAZINE [Concomitant]
     Indication: PROPHYLAXIS
     Route: 048
     Dates: start: 20110323, end: 20110405
  12. CODEINE SULFATE [Concomitant]
     Route: 048
     Dates: start: 20110413
  13. ATARAX [Concomitant]
     Route: 048
     Dates: start: 20110408, end: 20110414
  14. FENTANYL CITRATE [Suspect]
     Route: 062
     Dates: start: 20110330, end: 20110406
  15. CODEINE SULFATE [Concomitant]
     Route: 048
     Dates: start: 20110420
  16. PURSENNID [Concomitant]
     Dosage: AS NECESSARY
     Route: 048
     Dates: start: 20110406, end: 20110505
  17. LAXOBERON [Concomitant]
     Dosage: AS NECESSARY (0.8-1.0 ML)
     Route: 048
     Dates: start: 20110408, end: 20110505
  18. FENTANYL CITRATE [Suspect]
     Indication: PAIN
     Route: 062
     Dates: start: 20110420
  19. FENTANYL CITRATE [Suspect]
     Route: 062
     Dates: start: 20110323, end: 20110330
  20. HALCION [Concomitant]
     Dosage: AS NECESSARY
     Route: 048
     Dates: start: 20110506
  21. CODEINE SULFATE [Concomitant]
     Route: 048
     Dates: start: 20110323
  22. ALOSENN [Concomitant]
     Dosage: AS NECESSARY
     Route: 048
     Dates: start: 20110508
  23. ATARAX [Concomitant]
     Route: 048
     Dates: start: 20110415

REACTIONS (5)
  - CONSTIPATION [None]
  - SOMNOLENCE [None]
  - ANAEMIA [None]
  - PRURITUS [None]
  - INSOMNIA [None]
